FAERS Safety Report 5441116-0 (Version None)
Quarter: 2007Q3

REPORT INFORMATION
  Report Type: 
  Country: None (occurrence: None)
  Receive Date: 20070831
  Receipt Date: 20070726
  Transmission Date: 20080115
  Serious: Yes (Hospitalization, Other)
  Sender: FDA-Public Use
  Company Number: ES-PFIZER INC-2007061831

PATIENT
  Age: 49 Year
  Sex: Female

DRUGS (3)
  1. ZIPRASIDONE (CAPS) [Suspect]
     Indication: BIPOLAR I DISORDER
     Dosage: DAILY DOSE:40MG
     Route: 048
  2. DIPOTASSIUM CLORAZEPATE [Suspect]
  3. TOPIRAMATE [Concomitant]

REACTIONS (5)
  - DEPRESSED LEVEL OF CONSCIOUSNESS [None]
  - HYPOTENSION [None]
  - OVERDOSE [None]
  - SOMNOLENCE [None]
  - SUICIDE ATTEMPT [None]
